FAERS Safety Report 14845558 (Version 2)
Quarter: 2018Q3

REPORT INFORMATION
  Report Type: Spontaneous
  Country: US (occurrence: US)
  Receive Date: 20180504
  Receipt Date: 20180904
  Transmission Date: 20181010
  Serious: No
  Sender: FDA-Public Use
  Company Number: US-PFIZER INC-2018179547

PATIENT

DRUGS (1)
  1. BUPIVACAINE HCL [Suspect]
     Active Substance: BUPIVACAINE HYDROCHLORIDE
     Dosage: UNK (BUPIVACAINE 0.75%/DEXTROSE 8.25%, 2ML)

REACTIONS (1)
  - Drug ineffective [Unknown]
